FAERS Safety Report 7303452-2 (Version None)
Quarter: 2011Q1

REPORT INFORMATION
  Report Type: 
  Country: None (occurrence: None)
  Receive Date: 20110221
  Receipt Date: 20100517
  Transmission Date: 20110831
  Serious: Yes (Life-Threatening, Hospitalization, Other)
  Sender: FDA-Public Use
  Company Number: JP-BAYER-200910842BYL

PATIENT
  Age: 75 Year
  Sex: Male
  Weight: 55.6 kg

DRUGS (8)
  1. THYRADIN [Concomitant]
     Dosage: UNK UNK, QOD
     Route: 048
  2. ZYLORIC [Concomitant]
     Dosage: DAILY DOSE 100 MG
     Route: 048
  3. NEXAVAR [Suspect]
     Indication: RENAL CELL CARCINOMA
     Dosage: 400 MG, BID
     Route: 048
     Dates: start: 20090306, end: 20090313
  4. GLYCINE 1.5% [Concomitant]
     Dosage: DAILY DOSE 50 MG
     Route: 048
  5. UREPEARL [Concomitant]
     Indication: PROPHYLAXIS
     Dosage: UNK UNK, QS
     Route: 061
     Dates: start: 20090302, end: 20090313
  6. ONEALFA [Concomitant]
     Dosage: 0.5 ?G, QD
     Route: 048
  7. CALCIUM LACTATE [Concomitant]
     Dosage: DAILY DOSE 2 G
     Route: 048
  8. AMINOACETIC ACID [Concomitant]
     Dosage: 50 MG, QD
     Route: 048

REACTIONS (3)
  - HEPATIC FUNCTION ABNORMAL [None]
  - RENAL IMPAIRMENT [None]
  - SHOCK [None]
